FAERS Safety Report 6892560-6 (Version None)
Quarter: 2010Q3

REPORT INFORMATION
  Report Type: 
  Country: None (occurrence: None)
  Receive Date: 20100731
  Receipt Date: 20080625
  Transmission Date: 20110219
  Serious: No
  Sender: FDA-Public Use
  Company Number: US-PFIZER INC-2008053077

PATIENT
  Sex: Male
  Weight: 81.8 kg

DRUGS (1)
  1. NEURONTIN [Suspect]
     Indication: ANXIETY
     Dates: start: 20080622

REACTIONS (3)
  - MUSCULAR WEAKNESS [None]
  - PAIN IN EXTREMITY [None]
  - PARAESTHESIA [None]
